FAERS Safety Report 9165607 (Version 1)
Quarter: 2013Q1

REPORT INFORMATION
  Report Type: Spontaneous
  Country: IT (occurrence: IT)
  Receive Date: 20130315
  Receipt Date: 20130315
  Transmission Date: 20140127
  Serious: Yes (Death, Hospitalization)
  Sender: FDA-Public Use
  Company Number: IT-BANPHARM-20130937

PATIENT
  Age: 51 Year
  Sex: Male

DRUGS (1)
  1. IBUPROFEN UNKNOWN PRODUCT [Suspect]
     Dosage: 12 G,
     Route: 048
     Dates: start: 2012

REACTIONS (6)
  - Coma [Fatal]
  - Hypotension [Fatal]
  - Metabolic acidosis [Fatal]
  - Respiratory depression [Fatal]
  - Intentional overdose [Fatal]
  - Completed suicide [Fatal]
